FAERS Safety Report 7583454-1 (Version None)
Quarter: 2011Q2

REPORT INFORMATION
  Report Type: 
  Country: None (occurrence: None)
  Receive Date: 20110630
  Receipt Date: 20110622
  Transmission Date: 20111010
  Serious: Yes (Other)
  Sender: FDA-Public Use
  Company Number: JP-ROCHE-703412

PATIENT
  Sex: Female
  Weight: 37 kg

DRUGS (14)
  1. XELODA [Suspect]
     Dosage: NOTE: IT IS ONE ADMINISTERING WEEKLY HOLIDAY MEDICINE FOR TWO WEEKS.
     Route: 048
     Dates: start: 20100219, end: 20100423
  2. AVASTIN [Suspect]
     Indication: COLON CANCER
     Dosage: .
     Route: 041
     Dates: start: 20091204, end: 20100409
  3. XELODA [Suspect]
     Indication: COLON CANCER
     Dosage: NOTE: IT IS ONE ADMINISTERING WEEKLY HOLIDAY MEDICINE FOR TWO WEEKS.
     Route: 048
     Dates: start: 20091112, end: 20091209
  4. VITAMEDIN [Concomitant]
     Route: 048
     Dates: start: 20091112, end: 20100423
  5. DEXAMETHASONE SODIUM PHOSPHATE [Concomitant]
     Dosage: FORM:INJECTION
     Route: 041
     Dates: start: 20091112
  6. XELODA [Suspect]
     Dosage: NOTE: IT IS ONE ADMINISTERING WEEKLY HOLIDAY MEDICINE FOR TWO WEEKS.
     Route: 048
     Dates: start: 20100105, end: 20100209
  7. RABEPRAZOLE SODIUM [Concomitant]
     Route: 048
     Dates: start: 20091030
  8. MAGNESIUM SULFATE [Concomitant]
     Dosage: DOSE FORM: PERORAL AGENT. NOTE: DOSAGE IS UNCERTAIN.
     Route: 048
  9. OXALIPLATIN [Suspect]
     Indication: COLON CANCER
     Route: 041
     Dates: start: 20091112, end: 20091204
  10. OXALIPLATIN [Suspect]
     Route: 041
     Dates: start: 20100219, end: 20100219
  11. PURSENNID [Concomitant]
     Route: 048
     Dates: start: 20091109
  12. FOIPAN [Concomitant]
     Route: 048
     Dates: start: 20091208
  13. OXALIPLATIN [Suspect]
     Route: 041
     Dates: start: 20100105, end: 20100126
  14. RAMELTEON [Concomitant]
     Dates: start: 20091112

REACTIONS (6)
  - DECREASED APPETITE [None]
  - MALAISE [None]
  - KERATITIS [None]
  - NAUSEA [None]
  - PALMAR-PLANTAR ERYTHRODYSAESTHESIA SYNDROME [None]
  - PANCREATIC ENZYMES INCREASED [None]
